FAERS Safety Report 8222668-4 (Version None)
Quarter: 2012Q1

REPORT INFORMATION
  Report Type: 
  Country: None (occurrence: None)
  Receive Date: 20120320
  Receipt Date: 20120313
  Transmission Date: 20120608
  Serious: Yes (Hospitalization)
  Sender: FDA-Public Use
  Company Number: US-FRI-1000024018

PATIENT
  Age: 90 Year
  Sex: Male

DRUGS (10)
  1. LEXAPRO [Suspect]
     Indication: ANXIETY
     Dosage: 5 MG
     Route: 048
     Dates: start: 20070101, end: 20090101
  2. LISINOPRIL [Concomitant]
     Dosage: 5 MG
     Route: 048
  3. LEXAPRO [Suspect]
     Dosage: 10 MG
     Route: 048
     Dates: start: 20090101
  4. FERROUS SULFATE TAB [Concomitant]
  5. NEXIUM [Concomitant]
     Indication: GASTROOESOPHAGEAL REFLUX DISEASE
  6. SIMVASTATIN [Concomitant]
     Dosage: 10 MG
     Route: 048
  7. NORVASC [Concomitant]
     Dosage: 2.5 MG
     Route: 048
  8. PROSCAR [Concomitant]
  9. MULTIVITAMIN [Concomitant]
  10. STOOL SOFTENER [Concomitant]

REACTIONS (5)
  - DIVERTICULITIS [None]
  - GASTROINTESTINAL HAEMORRHAGE [None]
  - FATIGUE [None]
  - AMNESIA [None]
  - POOR QUALITY SLEEP [None]
